FAERS Safety Report 4805790-1 (Version None)
Quarter: 2005Q4

REPORT INFORMATION
  Report Type: 
  Country: None (occurrence: None)
  Receive Date: 20051018
  Receipt Date: 20051005
  Transmission Date: 20060501
  Serious: Yes (Hospitalization)
  Sender: FDA-Public Use
  Company Number: US-2005-014610

PATIENT
  Age: 72 Year
  Sex: Female
  Weight: 150 kg

DRUGS (15)
  1. BETASERON [Suspect]
     Indication: SECONDARY PROGRESSIVE MULTIPLE SCLEROSIS
     Dosage: 4 MIU EVERY 2 D SUBCUTANEOUS
     Route: 058
     Dates: start: 20050701, end: 20050719
  2. HYDROCHLOROTHIAZIDE [Concomitant]
  3. DIOVAN ^NOVARTIS^ (VALSARTAN) [Concomitant]
  4. KLOR-CON [Concomitant]
  5. BACLOFEN [Concomitant]
  6. AMITRIPTYLINE HCL [Concomitant]
  7. LORAZEPAM [Concomitant]
  8. DETROL-SLOW-RELEASE( TOLTERODINE L-TARTRATE) [Concomitant]
  9. PEPCID ACI (FAMOTIDINE) [Concomitant]
  10. ULTRA I [Concomitant]
  11. BIORUTIN [Concomitant]
  12. ICAPS(VITAMINS NOS, MINERALS NOS) [Concomitant]
  13. CRANACTIN [Concomitant]
  14. EXTRA STRENGTH TYLENOL [Concomitant]
  15. METAMUCIL (PLANTAGO OVATA) [Concomitant]

REACTIONS (2)
  - COLITIS [None]
  - MEGACOLON [None]
